FAERS Safety Report 19983406 (Version 1)
Quarter: 2021Q4

REPORT INFORMATION
  Report Type: Spontaneous
  Country: US (occurrence: US)
  Receive Date: 20211021
  Receipt Date: 20211021
  Transmission Date: 20220303
  Serious: No
  Sender: FDA-Public Use
  Company Number: US-SA-SAC20211020000857

PATIENT

DRUGS (2)
  1. TOUJEO MAX [Suspect]
     Active Substance: INSULIN GLARGINE
     Dosage: UNK
     Route: 065
  2. TOUJEO MAX [Suspect]
     Active Substance: INSULIN GLARGINE
     Dosage: TRIED SPLITTING MY SHOTS IN HALF AND TAKING THEM TWICE A DAY
     Route: 065

REACTIONS (8)
  - Dizziness [Unknown]
  - Thirst [Unknown]
  - Confusional state [Unknown]
  - Joint swelling [Unknown]
  - Blood glucose increased [Unknown]
  - Drug ineffective [Unknown]
  - Hypoglycaemia [Unknown]
  - Inappropriate schedule of product administration [Unknown]
